FAERS Safety Report 4292286-1 (Version None)
Quarter: 2004Q1

REPORT INFORMATION
  Report Type: 
  Country: None (occurrence: None)
  Receive Date: 20040211
  Receipt Date: 20040129
  Transmission Date: 20041129
  Serious: Yes (Death, Life-Threatening, Hospitalization)
  Sender: FDA-Public Use
  Company Number: CH-ROCHE-357638

PATIENT
  Age: 36 Year
  Sex: Male
  Weight: 95 kg

DRUGS (15)
  1. RIBAVIRIN [Suspect]
     Indication: HEPATITIS C
     Route: 048
     Dates: start: 20020517, end: 20021018
  2. PEG-INTERFERON ALFA 2A (RO 25-8310) [Suspect]
     Indication: HEPATITIS C
     Route: 058
     Dates: start: 20020517, end: 20021018
  3. DUPHALAC [Concomitant]
     Dates: start: 20011215
  4. PRAZINE [Concomitant]
     Dates: start: 20020905
  5. ZURCAL [Concomitant]
     Dates: start: 20020905
  6. REMERON [Concomitant]
     Dates: start: 20020905
  7. SERESTA [Concomitant]
     Dates: start: 20020905
  8. BENERVA [Concomitant]
     Dates: start: 20011215
  9. BECOZYME FORTE [Concomitant]
     Dates: start: 20011215
  10. ALDACTONE [Concomitant]
     Dates: start: 20011215
  11. MAGNESIUM DIASPORAL [Concomitant]
     Dates: start: 20011215
  12. INDERAL [Concomitant]
     Dates: start: 20011215
  13. STILNOX [Concomitant]
  14. SEROPRAM [Concomitant]
  15. ENTUMIN [Concomitant]

REACTIONS (7)
  - ALPHA 1 FOETOPROTEIN INCREASED [None]
  - ANAEMIA MACROCYTIC [None]
  - COMPLETED SUICIDE [None]
  - HEPATIC NEOPLASM MALIGNANT [None]
  - MALIGNANT NEOPLASM PROGRESSION [None]
  - PORTAL VEIN THROMBOSIS [None]
  - SUICIDE ATTEMPT [None]
